FAERS Safety Report 13032960 (Version 1)
Quarter: 2016Q4

REPORT INFORMATION
  Report Type: Report from Study
  Country: US (occurrence: US)
  Receive Date: 20161215
  Receipt Date: 20161215
  Transmission Date: 20170207
  Serious: Yes (Hospitalization, Other)
  Sender: FDA-Public Use
  Company Number: US-EXELIXIS-XL18416007725

PATIENT
  Age: 76 Year
  Sex: Male
  Weight: 54.9 kg

DRUGS (16)
  1. XL184 [Suspect]
     Active Substance: CABOZANTINIB
     Indication: PANCREATIC NEUROENDOCRINE TUMOUR METASTATIC
     Dosage: 60 MG, QD
     Route: 048
     Dates: start: 20140806, end: 20161207
  2. AMOXICILLIN. [Concomitant]
     Active Substance: AMOXICILLIN
  3. MAGNESIUM OXIDE. [Concomitant]
     Active Substance: MAGNESIUM OXIDE
  4. LINAGLIPTIN [Concomitant]
     Active Substance: LINAGLIPTIN
  5. DULERA [Concomitant]
     Active Substance: FORMOTEROL FUMARATE DIHYDRATE\MOMETASONE FUROATE
  6. LORAZEPAM. [Concomitant]
     Active Substance: LORAZEPAM
  7. NAPROXEN SODIUM. [Concomitant]
     Active Substance: NAPROXEN SODIUM
  8. COMPAZINE [Concomitant]
     Active Substance: PROCHLORPERAZINE MALEATE
  9. AMLODIPINE [Concomitant]
     Active Substance: AMLODIPINE BESYLATE
  10. METOPROLOL. [Concomitant]
     Active Substance: METOPROLOL
  11. FORMOTEROL W/MOMETASONE [Concomitant]
  12. AMITRIPTYLINE [Concomitant]
     Active Substance: AMITRIPTYLINE
  13. COMBIVENT [Concomitant]
     Active Substance: ALBUTEROL SULFATE\IPRATROPIUM BROMIDE
  14. DYAZIDE [Concomitant]
     Active Substance: HYDROCHLOROTHIAZIDE\TRIAMTERENE
  15. GABAPENTIN. [Concomitant]
     Active Substance: GABAPENTIN
  16. EMLA [Concomitant]
     Active Substance: LIDOCAINE\PRILOCAINE

REACTIONS (5)
  - Head injury [Unknown]
  - Confusional state [Unknown]
  - Hip fracture [Unknown]
  - Pneumonia [Unknown]
  - Chronic obstructive pulmonary disease [Unknown]

NARRATIVE: CASE EVENT DATE: 201611
